APPROVED DRUG PRODUCT: NUCYNTA
Active Ingredient: TAPENTADOL HYDROCHLORIDE
Strength: EQ 20MG BASE/ML **Federal Register determination that product was not discontinued or withdrawn for safety or effectiveness reasons**
Dosage Form/Route: SOLUTION;ORAL
Application: N203794 | Product #001
Applicant: COLLEGIUM PHARMACEUTICAL INC
Approved: Oct 15, 2012 | RLD: Yes | RS: No | Type: DISCN

EXCLUSIVITY:
Code: NPP | Date: Jul 3, 2026
Code: PED | Date: Jan 3, 2027